FAERS Safety Report 7036403-9 (Version None)
Quarter: 2010Q4

REPORT INFORMATION
  Report Type: 
  Country: None (occurrence: None)
  Receive Date: 20101010
  Receipt Date: 20100928
  Transmission Date: 20110411
  Serious: Yes (Hospitalization)
  Sender: FDA-Public Use
  Company Number: PHHY2010CA64354

PATIENT
  Sex: Female

DRUGS (1)
  1. ZOMETA [Suspect]
     Indication: BREAST CANCER METASTATIC
     Dosage: 4 MG, QMO
     Route: 042
     Dates: start: 20100902

REACTIONS (1)
  - VERTEBROPLASTY [None]
